FAERS Safety Report 9742498 (Version 2)
Quarter: 2013Q4

REPORT INFORMATION
  Report Type: Spontaneous
  Country: US (occurrence: US)
  Receive Date: 20131210
  Receipt Date: 20131227
  Transmission Date: 20140711
  Serious: Yes (Other)
  Sender: FDA-Public Use
  Company Number: US-DRREDDYS-USA/USA/13/0036176

PATIENT
  Age: 18 Year
  Sex: Male

DRUGS (3)
  1. ZENATANE [Suspect]
     Indication: ACNE
     Route: 048
     Dates: start: 201305, end: 20131203
  2. ZENATANE [Suspect]
     Route: 048
     Dates: start: 201305, end: 20131203
  3. XOPENEX [Concomitant]
     Indication: ASTHMA
     Route: 045

REACTIONS (1)
  - Anxiety [Recovered/Resolved]
